FAERS Safety Report 21849182 (Version 4)
Quarter: 2023Q1

REPORT INFORMATION
  Report Type: Spontaneous
  Country: US (occurrence: US)
  Receive Date: 20230111
  Receipt Date: 20230310
  Transmission Date: 20230417
  Serious: No
  Sender: FDA-Public Use
  Company Number: US-PFIZER INC-PV202300005641

PATIENT
  Age: 59 Year
  Sex: Female
  Weight: 78.458 kg

DRUGS (12)
  1. INLYTA [Suspect]
     Active Substance: AXITINIB
     Indication: Renal cell carcinoma
     Dosage: 5 MG, 2X/DAY
     Dates: start: 20220727, end: 20230118
  2. INLYTA [Suspect]
     Active Substance: AXITINIB
     Dosage: UNK
  3. INLYTA [Suspect]
     Active Substance: AXITINIB
     Dosage: UNK
  4. AMITRIPTYLINE [Concomitant]
     Active Substance: AMITRIPTYLINE
     Dosage: UNK
     Dates: start: 2017
  5. BACTRIM [Concomitant]
     Active Substance: SULFAMETHOXAZOLE\TRIMETHOPRIM
     Dosage: UNK
     Dates: start: 2017
  6. CARDIZEM [Concomitant]
     Active Substance: DILTIAZEM HYDROCHLORIDE
     Dosage: UNK
     Dates: start: 2017
  7. CEFIXIME [Concomitant]
     Active Substance: CEFIXIME
     Dosage: UNK
     Dates: start: 2017
  8. GRALISE [Concomitant]
     Active Substance: GABAPENTIN
     Dosage: UNK
     Dates: start: 2017
  9. LINZESS [Concomitant]
     Active Substance: LINACLOTIDE
     Dosage: UNK
  10. SYNTHROID [Concomitant]
     Active Substance: LEVOTHYROXINE SODIUM
     Dosage: UNK
     Dates: start: 202212
  11. VALTREX [Concomitant]
     Active Substance: VALACYCLOVIR HYDROCHLORIDE
     Dosage: UNK
     Dates: start: 2019
  12. VESICARE [Concomitant]
     Active Substance: SOLIFENACIN SUCCINATE
     Dosage: UNK
     Dates: start: 2019

REACTIONS (10)
  - Neoplasm progression [Recovered/Resolved]
  - Dysphonia [Unknown]
  - Dry mouth [Not Recovered/Not Resolved]
  - Palmar-plantar erythrodysaesthesia syndrome [Not Recovered/Not Resolved]
  - Vomiting [Not Recovered/Not Resolved]
  - Diarrhoea [Not Recovered/Not Resolved]
  - Vision blurred [Unknown]
  - Dysgeusia [Unknown]
  - Thyroid disorder [Unknown]
  - Pulmonary mass [Unknown]
